FAERS Safety Report 11898665 (Version 1)
Quarter: 2016Q1

REPORT INFORMATION
  Report Type: Spontaneous
  Country: US (occurrence: None)
  Receive Date: 20160107
  Receipt Date: 20160107
  Transmission Date: 20160526
  Serious: Yes (Disabling)
  Sender: FDA-Public Use
  Company Number: None

PATIENT
  Age: 74 Year
  Sex: Male
  Weight: 79.38 kg

DRUGS (9)
  1. CENTRUM SILVER MULTI-VITAMIN [Concomitant]
  2. NADOLOL. [Concomitant]
     Active Substance: NADOLOL
  3. ZETIA [Concomitant]
     Active Substance: EZETIMIBE
  4. CLOPIDOGREL [Concomitant]
     Active Substance: CLOPIDOGREL BISULFATE
  5. CLONAZEPAM. [Concomitant]
     Active Substance: CLONAZEPAM
  6. FISH OIL [Concomitant]
     Active Substance: FISH OIL
  7. PRALUENT [Suspect]
     Active Substance: ALIROCUMAB
     Indication: LOW DENSITY LIPOPROTEIN INCREASED
     Dosage: 75MG, GIVEN INTO/UNDER THE SKIN
     Dates: start: 20151205, end: 20151219
  8. ASPRIN [Concomitant]
     Active Substance: ASPIRIN
  9. GLUCOSAMINE [Concomitant]
     Active Substance: GLUCOSAMINE

REACTIONS (2)
  - Arthralgia [None]
  - Myalgia [None]

NARRATIVE: CASE EVENT DATE: 20151205
